FAERS Safety Report 5808951-8 (Version None)
Quarter: 2008Q3

REPORT INFORMATION
  Report Type: 
  Country: None (occurrence: None)
  Receive Date: 20080714
  Receipt Date: 20080704
  Transmission Date: 20090109
  Serious: Yes (Hospitalization)
  Sender: FDA-Public Use
  Company Number: FR-ABBOTT-08P-056-0461422-00

PATIENT
  Sex: Female

DRUGS (6)
  1. DEPAKOTE [Suspect]
     Indication: DEPRESSION
     Route: 048
     Dates: start: 20080408, end: 20080509
  2. CARBAMAZEPINE [Suspect]
     Indication: DEPRESSION
     Route: 048
     Dates: start: 20080506, end: 20080512
  3. CARBAMAZEPINE [Concomitant]
     Route: 048
     Dates: start: 20080506, end: 20080512
  4. PAROXETINE HCL [Concomitant]
     Indication: DRUG USE FOR UNKNOWN INDICATION
     Route: 048
  5. ALPRAZOLAM [Concomitant]
     Indication: DRUG USE FOR UNKNOWN INDICATION
     Route: 048
  6. EUGYNON [Concomitant]
     Indication: DRUG USE FOR UNKNOWN INDICATION
     Route: 048

REACTIONS (7)
  - DRUG RASH WITH EOSINOPHILIA AND SYSTEMIC SYMPTOMS [None]
  - LYMPHADENOPATHY [None]
  - LYMPHOPENIA [None]
  - NEUTROPENIA [None]
  - PLATELET COUNT DECREASED [None]
  - PYREXIA [None]
  - URTICARIA [None]
